FAERS Safety Report 7066853-6 (Version None)
Quarter: 2010Q4

REPORT INFORMATION
  Report Type: 
  Country: None (occurrence: None)
  Receive Date: 20101027
  Receipt Date: 20100924
  Transmission Date: 20110411
  Serious: No
  Sender: FDA-Public Use
  Company Number: US-WYE-H17772110

PATIENT
  Sex: Female
  Weight: 68.1 kg

DRUGS (2)
  1. PREMPRO [Suspect]
     Indication: MENOPAUSAL SYMPTOMS
     Dosage: 0.3MG/1.5MG ONCE DAILY
     Route: 048
     Dates: start: 20100801, end: 20100801
  2. SERTRALINE HYDROCHLORIDE [Concomitant]

REACTIONS (1)
  - METRORRHAGIA [None]
